FAERS Safety Report 4463613-7 (Version None)
Quarter: 2004Q3

REPORT INFORMATION
  Report Type: 
  Country: None (occurrence: None)
  Receive Date: 20040930
  Receipt Date: 20040917
  Transmission Date: 20050211
  Serious: Yes (Hospitalization, Other)
  Sender: FDA-Public Use
  Company Number: 2004S1002798

PATIENT
  Age: 63 Year
  Sex: Male

DRUGS (4)
  1. IXABEPILONE [Concomitant]
     Indication: CARCINOMA
     Dosage: 86MG, QD, INTRAVENOUS
     Route: 042
     Dates: start: 20040726, end: 20040726
  2. KETOCONAZOLE [Suspect]
     Indication: CARCINOMA
     Dosage: 400MG QD, ORAL
     Route: 048
     Dates: start: 20040419, end: 20040424
  3. RANITIDINE [Concomitant]
  4. DIPHENHYDRAMINE HCL [Concomitant]

REACTIONS (8)
  - BACK PAIN [None]
  - CONSTIPATION [None]
  - FATIGUE [None]
  - NEUROPATHY PERIPHERAL [None]
  - SPINAL CORD COMPRESSION [None]
  - SPINAL CORD INJURY [None]
  - SPINAL CORD NEOPLASM [None]
  - URINARY RETENTION [None]
